FAERS Safety Report 15858703 (Version 1)
Quarter: 2018Q4

REPORT INFORMATION
  Report Type: Spontaneous
  Country: US (occurrence: US)
  Receive Date: 20181231
  Receipt Date: 20181231
  Transmission Date: 20190205
  Serious: Yes (Life-Threatening, Other)
  Sender: FDA-Public Use
  Company Number: None

PATIENT
  Age: 41 Year
  Sex: Female
  Weight: 71.3 kg

DRUGS (2)
  1. MIRCERA [Suspect]
     Active Substance: METHOXY POLYETHYLENE GLYCOL-EPOETIN BETA
     Indication: ANAEMIA
     Dosage: ?          OTHER FREQUENCY:EVERY 2 WKS ;?
     Route: 040
     Dates: start: 20180731, end: 20180731
  2. VENOFER [Suspect]
     Active Substance: IRON SUCROSE
     Indication: IRON DEFICIENCY
     Route: 042
     Dates: start: 20180724

REACTIONS (7)
  - Swelling face [None]
  - Haemodialysis [None]
  - Urticaria [None]
  - Dyspnoea [None]
  - Blood pressure abnormal [None]
  - Infusion related reaction [None]
  - Pruritus [None]

NARRATIVE: CASE EVENT DATE: 20180731
